FAERS Safety Report 17733362 (Version 1)
Quarter: 2020Q2

REPORT INFORMATION
  Report Type: Spontaneous
  Country: US (occurrence: US)
  Receive Date: 20200501
  Receipt Date: 20200501
  Transmission Date: 20200714
  Serious: Yes (Death, Hospitalization)
  Sender: FDA-Public Use
  Company Number: None

PATIENT
  Age: 34 Month
  Sex: Female
  Weight: 14.5 kg

DRUGS (5)
  1. ONCASPAR [Suspect]
     Active Substance: PEGASPARGASE
     Dates: end: 20200421
  2. CYTARABINE. [Suspect]
     Active Substance: CYTARABINE
     Dates: end: 20200417
  3. DEXAMETHASONE. [Suspect]
     Active Substance: DEXAMETHASONE
     Dates: end: 20200424
  4. VINCRISTINE [Suspect]
     Active Substance: VINCRISTINE
     Dates: end: 20200418
  5. DAUNORUBICIN [Suspect]
     Active Substance: DAUNORUBICIN
     Dates: end: 20200418

REACTIONS (9)
  - Pyrexia [None]
  - Sepsis [None]
  - Escherichia test positive [None]
  - Cardiac arrest [None]
  - Hyponatraemia [None]
  - Cardiomyopathy [None]
  - Therapy interrupted [None]
  - Tachycardia [None]
  - Inappropriate antidiuretic hormone secretion [None]

NARRATIVE: CASE EVENT DATE: 20200424
